FAERS Safety Report 15203045 (Version 1)
Quarter: 2018Q3

REPORT INFORMATION
  Report Type: Spontaneous
  Country: US (occurrence: US)
  Receive Date: 20180627
  Receipt Date: 20180627
  Transmission Date: 20181010
  Serious: Yes (Other)
  Sender: FDA-Public Use
  Company Number: None

PATIENT
  Age: 69 Year
  Sex: Female
  Weight: 56.7 kg

DRUGS (18)
  1. VALACYCLOVIR [Concomitant]
     Active Substance: VALACYCLOVIR HYDROCHLORIDE
  2. BUTABITAL/ASA/CAFF LANN [Concomitant]
  3. PROBIOTICS [Concomitant]
     Active Substance: PROBIOTICS NOS
  4. CARVEDILOL. [Concomitant]
     Active Substance: CARVEDILOL
  5. SIMVASTATIN. [Concomitant]
     Active Substance: SIMVASTATIN
  6. MILK THISTLE [Concomitant]
     Active Substance: DIETARY SUPPLEMENT\HERBALS\MILK THISTLE
  7. PROLIA [Suspect]
     Active Substance: DENOSUMAB
     Indication: OSTEOPOROSIS
     Dates: start: 20170707, end: 20180510
  8. OSTEO BIOFLEX [Concomitant]
  9. AMITRIPTYLINE [Concomitant]
     Active Substance: AMITRIPTYLINE
  10. TOVIAS [Concomitant]
  11. QUINONE MAGNESIUM CITRATE [Concomitant]
  12. CRANBERRY. [Concomitant]
     Active Substance: CRANBERRY
  13. PYRROLOQUINOLINE QUINONE [Concomitant]
  14. ESTRACE [Concomitant]
     Active Substance: ESTRADIOL
  15. LISINOPRIL. [Concomitant]
     Active Substance: LISINOPRIL
  16. VITAMIN D [Concomitant]
     Active Substance: CHOLECALCIFEROL
  17. AMLODIPINE BESYLATE. [Concomitant]
     Active Substance: AMLODIPINE BESYLATE
  18. FIBER CAPS [Concomitant]
     Active Substance: CALCIUM POLYCARBOPHIL

REACTIONS (2)
  - Vertigo [None]
  - Deafness unilateral [None]

NARRATIVE: CASE EVENT DATE: 20180510
